FAERS Safety Report 9523421 (Version 1)
Quarter: 2013Q1

REPORT INFORMATION
  Report Type: Spontaneous
  Country: US (occurrence: None)
  Receive Date: 20130305
  Receipt Date: 20130305
  Transmission Date: 20140127
  Serious: Yes (Other)
  Sender: FDA-Public Use
  Company Number: 163-21880-12012582

PATIENT
  Age: 68 Year
  Sex: Female

DRUGS (9)
  1. REVLIMID (LENALIDOMIDE) (CAPSULES) [Suspect]
     Indication: MYELODYSPLASTIC SYNDROME
     Dosage: 5 MG, 1 IN 1 D, PO
     Route: 048
     Dates: start: 20110829
  2. XANAX (ALPRAZOLAM) (UNKNOWN) [Concomitant]
  3. ASPIRIN (ACETYLSALICYLIC ACID) (UNKNOWN) (ACETYLSALICYLIC ACID) [Concomitant]
  4. CIPRO (CIPROFLOXACIN) (UNKNOWN) [Concomitant]
  5. SUDAFED (PSEUDOEPHEDRINE HYDROCHLORIDE) (UNKNOWN) [Concomitant]
  6. FLEET LAXATIVE (BISACODYL) (UNKNOWN) [Concomitant]
  7. POTASSIUM CHLORIDE CR (POTASSIUM CHLORIDE) (UNKNOWN) [Concomitant]
  8. RECLAST (ZOLEDRONIC ACID) (UNKNOWN) [Concomitant]
  9. INSULIN (INSULIN) (UNKNOWN) [Concomitant]

REACTIONS (2)
  - Biliary colic [None]
  - Hypocalcaemia [None]
